FAERS Safety Report 12184663 (Version 1)
Quarter: 2016Q1

REPORT INFORMATION
  Report Type: Spontaneous
  Country: GB (occurrence: GB)
  Receive Date: 20160316
  Receipt Date: 20160316
  Transmission Date: 20160526
  Serious: Yes (Other)
  Sender: FDA-Public Use
  Company Number: GB-JNJFOC-20160310428

PATIENT
  Age: 45 Year
  Sex: Female
  Weight: 65 kg

DRUGS (7)
  1. DIHYDROCODEINE [Concomitant]
     Active Substance: DIHYDROCODEINE
     Indication: PAIN
     Dosage: CUMULATIVE DOSE TO FIRST REACTION: 2262.0. 1 DOSE (UNSPECIFIED UNIT)
     Route: 065
     Dates: start: 20160225
  2. SENNA [Concomitant]
     Active Substance: SENNA LEAF\SENNOSIDES\SENNOSIDES A AND B
     Indication: PRODUCT USED FOR UNKNOWN INDICATION
     Dosage: 2 DOSE (UNSPECIFIED UNIT) DAILY (AS REQUIRED).
     Route: 065
     Dates: start: 20140620, end: 20160229
  3. PARACETAMOL [Concomitant]
     Active Substance: ACETAMINOPHEN
     Indication: PAIN
     Dosage: AS REQUIRED. 2 DOSE (UNSPECIFIED UNIT)
     Route: 065
     Dates: start: 20150703, end: 20160229
  4. COCODAMOL [Suspect]
     Active Substance: ACETAMINOPHEN\CODEINE PHOSPHATE
     Indication: PRODUCT USED FOR UNKNOWN INDICATION
     Route: 065
     Dates: start: 20140201
  5. LANSOPRAZOLE. [Concomitant]
     Active Substance: LANSOPRAZOLE
     Indication: PRODUCT USED FOR UNKNOWN INDICATION
     Dosage: CUMULATIVE DOSE TO FIRST REACTION:138.958333. 1 DOSE (UNSPECIFIED UNIT)
     Route: 065
     Dates: start: 20140620, end: 20151222
  6. MODAFINIL. [Concomitant]
     Active Substance: MODAFINIL
     Indication: FATIGUE
     Dosage: CUMULATIVE DOSE TO FIRST REACTION:1508.0.??1 DOSE (UNSPECIFIED UNIT).
     Route: 065
     Dates: start: 20160225
  7. CITALOPRAM [Concomitant]
     Active Substance: CITALOPRAM HYDROBROMIDE
     Indication: DEPRESSED MOOD
     Dosage: CUMULATIVE DOSE TO FIRST REACTION: 1211.91666. 2 DOSE (UNSPECIFIED UNIT)
     Route: 065
     Dates: start: 20150930, end: 20160229

REACTIONS (3)
  - Abdominal pain [Recovered/Resolved]
  - Asthenia [Recovered/Resolved]
  - Malaise [Recovered/Resolved]

NARRATIVE: CASE EVENT DATE: 20140201
